FAERS Safety Report 24670176 (Version 1)
Quarter: 2024Q4

REPORT INFORMATION
  Report Type: Spontaneous
  Country: US (occurrence: None)
  Receive Date: 20241127
  Receipt Date: 20241127
  Transmission Date: 20250115
  Serious: Yes (Death)
  Sender: Public
  Company Number: None

PATIENT
  Age: 51 Year
  Sex: Female

DRUGS (4)
  1. MEKINIST [Suspect]
     Active Substance: TRAMETINIB DIMETHYL SULFOXIDE
     Indication: Neoplasm malignant
     Dosage: FREQUENCY : DAILY;?
  2. TAFINLAR [Suspect]
     Active Substance: DABRAFENIB MESYLATE
  3. TEMOZOLOMIDE [Suspect]
     Active Substance: TEMOZOLOMIDE
  4. CAPECITABINE [Suspect]
     Active Substance: CAPECITABINE

REACTIONS (1)
  - Off label use [None]
